FAERS Safety Report 8076101-6 (Version None)
Quarter: 2012Q1

REPORT INFORMATION
  Report Type: 
  Country: None (occurrence: None)
  Receive Date: 20120127
  Receipt Date: 20110825
  Transmission Date: 20120608
  Serious: No
  Sender: FDA-Public Use
  Company Number: US-GLAXOSMITHKLINE-A0943183A

PATIENT
  Age: 55 Year
  Sex: Male

DRUGS (4)
  1. LITHIUM CARBONATE [Concomitant]
  2. ZOLOFT [Concomitant]
  3. WELLBUTRIN XL [Suspect]
     Indication: MAJOR DEPRESSION
     Dosage: 450MG PER DAY
     Route: 048
     Dates: start: 20110301
  4. CLONAZEPAM [Concomitant]

REACTIONS (1)
  - TARDIVE DYSKINESIA [None]
